FAERS Safety Report 13466530 (Version 4)
Quarter: 2017Q3

REPORT INFORMATION
  Report Type: Spontaneous
  Country: JP (occurrence: JP)
  Receive Date: 20170421
  Receipt Date: 20170815
  Transmission Date: 20171127
  Serious: Yes (Hospitalization)
  Sender: FDA-Public Use
  Company Number: PHJP2017JP012747

PATIENT
  Age: 84 Year
  Sex: Male
  Weight: 58.35 kg

DRUGS (5)
  1. REVOLADE TAB [Suspect]
     Active Substance: ELTROMBOPAG
     Indication: IMMUNE THROMBOCYTOPENIC PURPURA
     Dosage: 25 MG, QD
     Route: 048
     Dates: start: 20160914, end: 20170327
  2. BENET [Concomitant]
     Active Substance: RISEDRONATE SODIUM
     Indication: OSTEOPOROSIS
     Dosage: 17.5 MG, QW
     Route: 048
     Dates: start: 20160819
  3. PREDONINE [Suspect]
     Active Substance: PREDNISOLONE
     Indication: IMMUNE THROMBOCYTOPENIC PURPURA
     Dosage: 7 MG, QD
     Route: 048
     Dates: end: 20170515
  4. REVOLADE TAB [Suspect]
     Active Substance: ELTROMBOPAG
     Dosage: 12.5 MG, UNK
     Route: 048
     Dates: start: 20170413
  5. PARIET [Concomitant]
     Active Substance: RABEPRAZOLE SODIUM
     Indication: MUCOUS MEMBRANE DISORDER
     Dosage: 10 MG, QD
     Route: 048
     Dates: start: 20160819

REACTIONS (5)
  - Peripheral swelling [Unknown]
  - Peripheral artery occlusion [Not Recovered/Not Resolved]
  - Pain in extremity [Unknown]
  - Sensory disturbance [Unknown]
  - Skin discolouration [Unknown]

NARRATIVE: CASE EVENT DATE: 20170326
